FAERS Safety Report 7516831-5 (Version None)
Quarter: 2011Q2

REPORT INFORMATION
  Report Type: 
  Country: None (occurrence: None)
  Receive Date: 20110601
  Receipt Date: 20110527
  Transmission Date: 20111010
  Serious: Yes (Hospitalization)
  Sender: FDA-Public Use
  Company Number: US-MERCK-1103USA03633

PATIENT
  Age: 30 Year
  Sex: Female

DRUGS (1)
  1. COSOPT [Suspect]
     Route: 047
     Dates: start: 20110315

REACTIONS (1)
  - EYE BURNS [None]
